FAERS Safety Report 6580133-4 (Version None)
Quarter: 2010Q1

REPORT INFORMATION
  Report Type: 
  Country: None (occurrence: None)
  Receive Date: 20100212
  Receipt Date: 20100205
  Transmission Date: 20100710
  Serious: Yes (Other)
  Sender: FDA-Public Use
  Company Number: US-BAYER-201011343BCC

PATIENT
  Sex: Male

DRUGS (2)
  1. ASPIRIN [Suspect]
     Indication: AORTIC VALVE REPLACEMENT
     Route: 065
     Dates: start: 20080101
  2. PLAVIX [Suspect]
     Indication: STENT PLACEMENT
     Dosage: TOTAL DAILY DOSE: 75 MG  UNIT DOSE: 75 MG
     Route: 048
     Dates: start: 20080101

REACTIONS (1)
  - ULCER [None]
